FAERS Safety Report 4452600-0 (Version None)
Quarter: 2004Q3

REPORT INFORMATION
  Report Type: 
  Country: None (occurrence: None)
  Receive Date: 20040916
  Receipt Date: 20040902
  Transmission Date: 20050211
  Serious: Yes (Hospitalization)
  Sender: FDA-Public Use
  Company Number: 04P-056-0272342-00

PATIENT
  Age: 40 Year
  Sex: Male

DRUGS (10)
  1. KALETRA SOFT GELATIN CAPSULES (LOPINAVIR/TRITONAVIR) [Suspect]
     Indication: HIV INFECTION
     Dosage: 2 DOSAGE FORMS, 1 IN 1 D
     Dates: start: 20040727, end: 20040810
  2. BACTRIM [Suspect]
     Dates: end: 20040810
  3. PROPRANOLOL [Concomitant]
  4. POTASSIUM CHLORIDE [Concomitant]
  5. TRAMADOL HCL [Concomitant]
  6. CLAFORAN [Suspect]
     Dates: end: 20040810
  7. COMBIVIR [Suspect]
     Dates: end: 20040810
  8. OMEPRAZOLE [Concomitant]
  9. FLUCONAZOLE [Concomitant]
  10. OFLOXACIN [Concomitant]

REACTIONS (3)
  - ASCITES [None]
  - NEUTROPENIA [None]
  - OEDEMA [None]
